FAERS Safety Report 14194487 (Version 1)
Quarter: 2017Q4

REPORT INFORMATION
  Report Type: Spontaneous
  Country: US (occurrence: US)
  Receive Date: 20171115
  Receipt Date: 20171115
  Transmission Date: 20180321
  Serious: Yes (Other)
  Sender: FDA-Public Use
  Company Number: None

PATIENT
  Age: 19 Year
  Sex: Male
  Weight: 87.75 kg

DRUGS (5)
  1. RISPERIDONE ORAL SOLUTION [Suspect]
     Active Substance: RISPERIDONE
     Indication: AUTISM SPECTRUM DISORDER
     Dosage: 30 ML; 3 ML:AM 2ML: 12PM?
     Route: 048
     Dates: start: 20170301, end: 20171114
  2. VITAMIN D [Concomitant]
     Active Substance: CHOLECALCIFEROL
  3. RISPERIDONE ORAL SOLUTION [Suspect]
     Active Substance: RISPERIDONE
     Indication: AGGRESSION
     Dosage: 30 ML; 3 ML:AM 2ML: 12PM?
     Route: 048
     Dates: start: 20170301, end: 20171114
  4. ASPIRIN. [Concomitant]
     Active Substance: ASPIRIN
  5. FISH OIL [Concomitant]
     Active Substance: FISH OIL

REACTIONS (7)
  - Fatigue [None]
  - Gait disturbance [None]
  - Drooling [None]
  - Restless legs syndrome [None]
  - Decreased appetite [None]
  - Pain in extremity [None]
  - Insomnia [None]

NARRATIVE: CASE EVENT DATE: 20171110
